FAERS Safety Report 11104673 (Version 2)
Quarter: 2015Q4

REPORT INFORMATION
  Report Type: Spontaneous
  Country: US (occurrence: US)
  Receive Date: 20150511
  Receipt Date: 20151105
  Transmission Date: 20160304
  Serious: Yes (Hospitalization, Other)
  Sender: FDA-Public Use
  Company Number: US-BAYER-2015-216152

PATIENT
  Age: 21 Year
  Sex: Female
  Weight: 56.69 kg

DRUGS (3)
  1. AMOXICILLIN. [Concomitant]
     Active Substance: AMOXICILLIN
     Dosage: 500 MG, UNK
     Dates: start: 20140903
  2. FERROUS SULFATE [Concomitant]
     Active Substance: FERROUS SULFATE\FERROUS SULFATE, DRIED
  3. MIRENA [Suspect]
     Active Substance: LEVONORGESTREL
     Indication: CONTRACEPTION
     Dosage: 20 MCG/24HR, CONT
     Route: 015
     Dates: start: 201207, end: 20140911

REACTIONS (5)
  - Pain [None]
  - Uterine perforation [None]
  - Pregnancy with contraceptive device [None]
  - Drug ineffective [None]
  - Injury [None]

NARRATIVE: CASE EVENT DATE: 20130920
